FAERS Safety Report 15003180 (Version 1)
Quarter: 2018Q2

REPORT INFORMATION
  Report Type: Other
  Country: CA (occurrence: CA)
  Receive Date: 20180613
  Receipt Date: 20180613
  Transmission Date: 20180711
  Serious: Yes (Other)
  Sender: FDA-Public Use
  Company Number: CA-APOTEX-2018AP015330

PATIENT
  Age: 30 Year
  Sex: Male

DRUGS (7)
  1. HALDOL [Concomitant]
     Active Substance: HALOPERIDOL
     Indication: PRODUCT USED FOR UNKNOWN INDICATION
     Dosage: UNK
     Route: 065
  2. OLANZAPINE. [Suspect]
     Active Substance: OLANZAPINE
     Indication: PRODUCT USED FOR UNKNOWN INDICATION
     Dosage: UNK
     Route: 065
  3. RISPERDAL CONSTA [Suspect]
     Active Substance: RISPERIDONE
     Indication: PRODUCT USED FOR UNKNOWN INDICATION
     Dosage: 25 MG, UNK
     Route: 030
  4. LITHIUM CARBONATE. [Suspect]
     Active Substance: LITHIUM CARBONATE
     Indication: PRODUCT USED FOR UNKNOWN INDICATION
     Dosage: 900 MG, BID
     Route: 065
  5. ZYPREXA [Suspect]
     Active Substance: OLANZAPINE
     Indication: PRODUCT USED FOR UNKNOWN INDICATION
     Dosage: UNK
     Route: 065
  6. RISPERIDONE. [Concomitant]
     Active Substance: RISPERIDONE
     Indication: PRODUCT USED FOR UNKNOWN INDICATION
     Dosage: UNK
     Route: 065
  7. ABILIFY [Suspect]
     Active Substance: ARIPIPRAZOLE
     Indication: PRODUCT USED FOR UNKNOWN INDICATION
     Dosage: 20 MG, UNK
     Route: 048

REACTIONS (5)
  - Psychotic symptom [Recovering/Resolving]
  - Irritability [Recovering/Resolving]
  - Agitation [Recovering/Resolving]
  - Anxiety [Recovering/Resolving]
  - Psychotic disorder [Recovering/Resolving]
